FAERS Safety Report 8603484-8 (Version None)
Quarter: 2012Q3

REPORT INFORMATION
  Report Type: 
  Country: None (occurrence: None)
  Receive Date: 20120817
  Receipt Date: 20120810
  Transmission Date: 20120928
  Serious: Yes (Other)
  Sender: FDA-Public Use
  Company Number: CHPA2012US017009

PATIENT
  Age: 92 Year
  Sex: Female

DRUGS (2)
  1. PRILOSEC [Concomitant]
     Indication: GASTRIC ULCER HAEMORRHAGE
     Dosage: 1 DF, QD
     Route: 048
     Dates: start: 20070101
  2. MAALOX ANTACID/ANTIGAS MAX QDTABS ASST [Suspect]
     Indication: ERUCTATION
     Dosage: 2 DF, QHS
     Route: 048
     Dates: start: 20070101

REACTIONS (4)
  - THERAPEUTIC RESPONSE UNEXPECTED [None]
  - OFF LABEL USE [None]
  - MACULAR DEGENERATION [None]
  - INCORRECT DRUG ADMINISTRATION DURATION [None]
